FAERS Safety Report 5191418-0 (Version None)
Quarter: 2006Q4

REPORT INFORMATION
  Report Type: 
  Country: None (occurrence: None)
  Receive Date: 20061226
  Receipt Date: 20061207
  Transmission Date: 20070319
  Serious: Yes (Death)
  Sender: FDA-Public Use
  Company Number: 2006AP05884

PATIENT
  Age: 27728 Day
  Sex: Female
  Weight: 57.6 kg

DRUGS (2)
  1. IRESSA [Suspect]
     Indication: NON-SMALL CELL LUNG CANCER
     Route: 048
     Dates: start: 20061129, end: 20061205
  2. TAKEPRON [Concomitant]
     Indication: GASTRIC CANCER
     Route: 048
     Dates: start: 20061106, end: 20061207

REACTIONS (1)
  - PULMONARY ALVEOLAR HAEMORRHAGE [None]
